FAERS Safety Report 4550029-8 (Version None)
Quarter: 2005Q1

REPORT INFORMATION
  Report Type: 
  Country: None (occurrence: None)
  Receive Date: 20050110
  Receipt Date: 20041227
  Transmission Date: 20050727
  Serious: Yes (Hospitalization, Other)
  Sender: FDA-Public Use
  Company Number: 2005002521

PATIENT
  Age: 56 Year
  Sex: Female
  Weight: 51.7101 kg

DRUGS (15)
  1. BEXTRA [Suspect]
     Indication: ARTHRITIS
     Dosage: UNK (1 D), ORAL
     Route: 048
     Dates: start: 20041209, end: 20041201
  2. NICOTINE [Concomitant]
  3. ESTROPIPATE [Concomitant]
  4. RANITIDINE [Concomitant]
  5. HYDROCHLOROTHIAZIDE [Concomitant]
  6. VALSARTAN (VALSARTAN) [Concomitant]
  7. BUDESONIDE (BUDESONIDE) [Concomitant]
  8. SALBUTAMOL (SALBUTAMOL) [Concomitant]
  9. HYDROCORTISONE [Concomitant]
  10. ATORVASTATIN (ATORVASTATIN) [Concomitant]
  11. CYCLOBENZAPRINE (CYCLOBENZAPRINE) [Concomitant]
  12. FOLIC ACID [Concomitant]
  13. BETAMETHASONE VALERATE (BETAMETHASONE VALERATE) [Concomitant]
  14. TAZAROTENE (TAZAROTENE) [Concomitant]
  15. ALL OTHER NON-THERAPEUTIC PRODUCTS (ALL OTHER NON-THERAPEUTIC PRODUCTS [Concomitant]

REACTIONS (8)
  - AURICULAR SWELLING [None]
  - DYSPNOEA [None]
  - EAR PAIN [None]
  - FORMICATION [None]
  - OROPHARYNGEAL SWELLING [None]
  - PSORIASIS [None]
  - RASH GENERALISED [None]
  - TYMPANIC MEMBRANE DISORDER [None]
